FAERS Safety Report 8462811-5 (Version None)
Quarter: 2012Q2

REPORT INFORMATION
  Report Type: 
  Country: None (occurrence: None)
  Receive Date: 20120619
  Receipt Date: 20120619
  Transmission Date: 20120825
  Serious: Yes (Hospitalization)
  Sender: FDA-Public Use
  Company Number: None

PATIENT
  Sex: Female
  Weight: 86 kg

DRUGS (2)
  1. TAXOL [Suspect]
     Dosage: 324 MG
  2. CARBOPLATIN [Suspect]
     Dosage: 536 MG

REACTIONS (8)
  - NAUSEA [None]
  - URINARY TRACT INFECTION [None]
  - VOMITING [None]
  - ENTEROCOCCUS TEST POSITIVE [None]
  - ESCHERICHIA TEST POSITIVE [None]
  - FATIGUE [None]
  - SEPSIS [None]
  - CULTURE URINE POSITIVE [None]
